FAERS Safety Report 6557650-6 (Version None)
Quarter: 2010Q1

REPORT INFORMATION
  Report Type: 
  Country: None (occurrence: None)
  Receive Date: 20100129
  Receipt Date: 20091106
  Transmission Date: 20100710
  Serious: Yes (Death)
  Sender: FDA-Public Use
  Company Number: GB-JNJFOC-20090906348

PATIENT
  Age: 87 Year
  Sex: Female
  Weight: 56 kg

DRUGS (11)
  1. REMICADE [Suspect]
     Indication: RHEUMATOID ARTHRITIS
     Route: 042
     Dates: start: 20030717
  2. SULPHASALAZINE [Concomitant]
  3. METHOTREXATE [Concomitant]
  4. PREDNISOLONE [Concomitant]
  5. DIHYDROCODEINE BITARTRATE INJ [Concomitant]
  6. ENALAPRIL MALEATE [Concomitant]
  7. FOLIC ACID [Concomitant]
  8. LOSEC [Concomitant]
  9. LEVOTHYROXINE SODIUM [Concomitant]
  10. CHLOROQUINE PHOSPHATE [Concomitant]
  11. HYDROXYCHLOROQUINE SULFATE [Concomitant]

REACTIONS (8)
  - CARDIAC FAILURE CONGESTIVE [None]
  - CERVICAL VERTEBRAL FRACTURE [None]
  - CLAVICLE FRACTURE [None]
  - FALL [None]
  - MYOCARDIAL ISCHAEMIA [None]
  - RIB FRACTURE [None]
  - SKULL FRACTURE [None]
  - SUBDURAL HAEMATOMA [None]
